FAERS Safety Report 9957918 (Version 1)
Quarter: 2014Q1

REPORT INFORMATION
  Report Type: Report from Study
  Country: US (occurrence: US)
  Receive Date: 20140304
  Receipt Date: 20140304
  Transmission Date: 20141002
  Serious: No
  Sender: FDA-Public Use
  Company Number: US-ABBVIE-13P-163-1092542-00

PATIENT
  Age: 72 Year
  Sex: Male
  Weight: 108.96 kg

DRUGS (11)
  1. HUMIRA [Suspect]
     Indication: CROHN^S DISEASE
     Dosage: ONCE
     Dates: start: 20130520, end: 20130520
  2. LANTUS [Concomitant]
     Indication: DIABETES MELLITUS
  3. ASACOL [Concomitant]
     Indication: CROHN^S DISEASE
  4. METFORMIN [Concomitant]
     Indication: DIABETES MELLITUS
  5. NEXIUM [Concomitant]
     Indication: GASTROOESOPHAGEAL REFLUX DISEASE
  6. ZANTAC [Concomitant]
     Indication: GASTROOESOPHAGEAL REFLUX DISEASE
  7. LISINOPRIL [Concomitant]
     Indication: HYPERTENSION
  8. LOVASTATIN [Concomitant]
     Indication: BLOOD CHOLESTEROL INCREASED
  9. ONGLYZA [Concomitant]
     Indication: DIABETES MELLITUS
  10. FLOMAX [Concomitant]
     Indication: PROSTATOMEGALY
  11. NIFEDIPINE ER [Concomitant]
     Indication: PALPITATIONS

REACTIONS (1)
  - Injection site nodule [Recovering/Resolving]
